FAERS Safety Report 8834058 (Version 1)
Quarter: 2012Q4

REPORT INFORMATION
  Report Type: 
  Country: HK (occurrence: HK)
  Receive Date: 20121010
  Receipt Date: 20121010
  Transmission Date: 20130627
  Serious: Yes (Hospitalization, Other)
  Sender: FDA-Public Use
  Company Number: HK-ARROW-2012-17168

PATIENT
  Age: 63 Year
  Sex: Female

DRUGS (4)
  1. ACYCLOVIR (UNKNOWN) [Suspect]
     Indication: HERPES ZOSTER
     Dosage: 400 mg, qid
     Route: 048
  2. ACYCLOVIR (UNKNOWN) [Suspect]
     Dosage: 4 gms 5 times daily
     Route: 061
  3. DILTIAZEM HCL [Concomitant]
     Indication: PRODUCT USED FOR UNKNOWN INDICATION
     Dosage: UNK
     Route: 065
  4. CALCIUM CARBONATE [Concomitant]
     Indication: PRODUCT USED FOR UNKNOWN INDICATION
     Dosage: UNK
     Route: 065

REACTIONS (2)
  - Neurotoxicity [Recovered/Resolved]
  - Encephalopathy [None]
